FAERS Safety Report 21013290 (Version 1)
Quarter: 2022Q2

REPORT INFORMATION
  Report Type: Spontaneous
  Country: US (occurrence: US)
  Receive Date: 20220627
  Receipt Date: 20220627
  Transmission Date: 20220721
  Serious: Yes (Other)
  Sender: FDA-Public Use
  Company Number: US-SA-SAC20220620001945

PATIENT
  Sex: Female

DRUGS (1)
  1. AUBAGIO [Suspect]
     Active Substance: TERIFLUNOMIDE
     Indication: Multiple sclerosis
     Dosage: 7 MG, QD
     Route: 048
     Dates: start: 20220324

REACTIONS (21)
  - Multiple sclerosis relapse [Unknown]
  - Depression [Unknown]
  - Balance disorder [Unknown]
  - Dizziness [Unknown]
  - Fatigue [Unknown]
  - Sleep disorder [Unknown]
  - Hyperhidrosis [Unknown]
  - Asthenia [Unknown]
  - Musculoskeletal stiffness [Unknown]
  - Muscle spasticity [Unknown]
  - Pain [Unknown]
  - Vision blurred [Unknown]
  - Bladder disorder [Unknown]
  - Gastrointestinal disorder [Unknown]
  - Cognitive disorder [Unknown]
  - Visual impairment [Unknown]
  - Fall [Unknown]
  - Feeling abnormal [Unknown]
  - Nausea [Unknown]
  - Headache [Unknown]
  - Alopecia [Unknown]
